FAERS Safety Report 9448625 (Version 3)
Quarter: 2013Q4

REPORT INFORMATION
  Report Type: Spontaneous
  Country: US (occurrence: US)
  Receive Date: 20130808
  Receipt Date: 20131121
  Transmission Date: 20140711
  Serious: Yes (Other)
  Sender: FDA-Public Use
  Company Number: PHEH2013US016648

PATIENT
  Age: 78 Year
  Sex: Female

DRUGS (24)
  1. DIOVAN [Suspect]
     Dosage: 320 MG, QD
     Route: 048
  2. DIOVAN [Suspect]
     Dosage: 320 MG, QD
     Route: 048
  3. NOVOLOG [Concomitant]
     Dosage: UNK UKN, UNK
  4. NOVOLOG [Concomitant]
     Dosage: 100 IU, UNK
  5. LANTUS [Concomitant]
     Dosage: UNK UKN, UNK
  6. LANTUS [Concomitant]
     Dosage: 100 IU, UNK
  7. ALLERGY [Concomitant]
     Dosage: UNK UKN, UNK
  8. ALBUTEROL SULFATE [Concomitant]
     Dosage: UNK UKN, UNK
  9. AMLODIPINE [Concomitant]
     Dosage: UNK UKN, UNK
  10. AMLODIPINE [Concomitant]
     Dosage: 10 MG, UNK
  11. FERROUS SULFATE [Concomitant]
     Dosage: 325 MG, QD
  12. MULTI-VIT [Concomitant]
     Dosage: UNK UKN, UNK
  13. ASA [Concomitant]
     Dosage: UNK UKN, UNK
  14. ASA [Concomitant]
     Dosage: 81 MG, UNK
  15. AMLODIPINE BESYLATE [Concomitant]
     Dosage: UNK UKN, UNK
  16. LYRICA [Concomitant]
     Dosage: 75 MG, UNK
  17. HIDROCODONA/ACETAMINOFEN MALLINCKRODT [Concomitant]
     Dosage: 1 DF, UNK
  18. HYDRALAZINE [Concomitant]
     Dosage: 50 MG, UNK
  19. FUROSEMIDE [Concomitant]
     Dosage: 20 MG, UNK
  20. RANITIDINE [Concomitant]
     Dosage: 150 MG, UNK
  21. VITAMIN E [Concomitant]
     Dosage: UNK UKN, UNK
  22. CENTRUM SILVER [Concomitant]
     Dosage: UNK UKN, UNK
  23. VITAMIN B 12 [Concomitant]
     Dosage: 100 UG, UNK
  24. IRON [Concomitant]
     Dosage: 65 MG, UNK

REACTIONS (8)
  - Heart injury [Unknown]
  - Asthma [Unknown]
  - Dyspnoea [Unknown]
  - Herpes zoster [Unknown]
  - Dysstasia [Unknown]
  - Feeling abnormal [Unknown]
  - Headache [Unknown]
  - Back pain [Unknown]
